FAERS Safety Report 11195394 (Version 1)
Quarter: 2015Q2

REPORT INFORMATION
  Report Type: Spontaneous
  Country: RU (occurrence: RU)
  Receive Date: 20150617
  Receipt Date: 20150617
  Transmission Date: 20150821
  Serious: Yes (Hospitalization, Other)
  Sender: FDA-Public Use
  Company Number: RU-JNJFOC-20150609433

PATIENT
  Age: 19 Year
  Sex: Female

DRUGS (1)
  1. SIMPONI [Suspect]
     Active Substance: GOLIMUMAB
     Indication: COLITIS ULCERATIVE
     Route: 058
     Dates: start: 201411, end: 20150506

REACTIONS (2)
  - Haemorrhage [Unknown]
  - Intestinal operation [Unknown]

NARRATIVE: CASE EVENT DATE: 20150601
